FAERS Safety Report 5449405-0 (Version None)
Quarter: 2007Q3

REPORT INFORMATION
  Report Type: 
  Country: None (occurrence: None)
  Receive Date: 20070911
  Receipt Date: 20070905
  Transmission Date: 20080115
  Serious: Yes (Other)
  Sender: FDA-Public Use
  Company Number: GB-MERCK-0709GBR00033

PATIENT
  Age: 85 Year
  Sex: Male

DRUGS (4)
  1. ZOCOR [Suspect]
     Indication: HYPERCHOLESTEROLAEMIA
     Route: 048
  2. FUROSEMIDE [Concomitant]
     Route: 048
  3. CLOPIDOGREL BISULFATE [Concomitant]
     Route: 048
  4. RAMIPRIL [Concomitant]
     Indication: BLOOD PRESSURE
     Route: 048

REACTIONS (3)
  - DEHYDRATION [None]
  - MALAISE [None]
  - VOMITING [None]
